FAERS Safety Report 10919352 (Version 1)
Quarter: 2015Q1

REPORT INFORMATION
  Report Type: Spontaneous
  Country: DE (occurrence: DE)
  Receive Date: 20150316
  Receipt Date: 20150316
  Transmission Date: 20150721
  Serious: Yes (Other)
  Sender: FDA-Public Use
  Company Number: GXKR2015DE000871

PATIENT
  Sex: Female
  Weight: 84 kg

DRUGS (5)
  1. AMOXI 1A PHARMA [Suspect]
     Active Substance: AMOXICILLIN
     Indication: PHARYNGITIS
     Dosage: 1000 MG, TID
     Route: 048
     Dates: start: 20150124, end: 20150130
  2. BRONCHIPRET TP [Concomitant]
     Indication: COUGH
  3. AMOXI 1A PHARMA [Suspect]
     Active Substance: AMOXICILLIN
     Indication: SINUSITIS
  4. BRONCHIPRET TP [Concomitant]
     Indication: RHINITIS
  5. BRONCHIPRET TP [Concomitant]
     Indication: VIRAL INFECTION
     Dosage: 1-2 DF DAILY
     Route: 048
     Dates: start: 20150122, end: 20150127

REACTIONS (6)
  - Pulmonary function test abnormal [Unknown]
  - Dizziness [Recovered/Resolved]
  - Circulatory collapse [Recovered/Resolved]
  - Chest discomfort [Recovered/Resolved]
  - Bronchial obstruction [Recovered/Resolved]
  - Dyspnoea [Recovered/Resolved]

NARRATIVE: CASE EVENT DATE: 20150126
